FAERS Safety Report 25335526 (Version 2)
Quarter: 2025Q2

REPORT INFORMATION
  Report Type: Spontaneous
  Country: US (occurrence: US)
  Receive Date: 20250520
  Receipt Date: 20250616
  Transmission Date: 20250716
  Serious: No
  Sender: BRISTOL-MYERS SQUIBB COMPANY
  Company Number: US-BRISTOL-MYERS SQUIBB COMPANY-2025-071667

PATIENT
  Age: 81 Year
  Sex: Male

DRUGS (14)
  1. REVLIMID [Suspect]
     Active Substance: LENALIDOMIDE
     Indication: Plasma cell myeloma
     Dates: start: 201608, end: 201703
  2. ALLEGRA ALLERGY [Concomitant]
     Active Substance: FEXOFENADINE HYDROCHLORIDE
     Indication: Product used for unknown indication
  3. TAMSULOSIN [Concomitant]
     Active Substance: TAMSULOSIN
     Indication: Prostate cancer
  4. ELIQUIS [Concomitant]
     Active Substance: APIXABAN
     Indication: Prostate cancer
  5. ACYCLOVIR [Concomitant]
     Active Substance: ACYCLOVIR
     Indication: Prostate cancer
  6. ATORVASTATIN [Concomitant]
     Active Substance: ATORVASTATIN
     Indication: Prostate cancer
  7. BENZONATATE [Concomitant]
     Active Substance: BENZONATATE
     Indication: Prostate cancer
  8. CARVEDILOL [Concomitant]
     Active Substance: CARVEDILOL
     Indication: Prostate cancer
  9. DARZALEX FASPRO [DARATUMUMAB] [Concomitant]
     Indication: Prostate cancer
  10. DEXAMETHASONE [Concomitant]
     Active Substance: DEXAMETHASONE
     Indication: Prostate cancer
  11. FLONASE [Concomitant]
     Active Substance: FLUTICASONE PROPIONATE
     Indication: Prostate cancer
  12. LISINOPRIL [Concomitant]
     Active Substance: LISINOPRIL
     Indication: Prostate cancer
  13. LORAZEPAM [Concomitant]
     Active Substance: LORAZEPAM
     Indication: Prostate cancer
  14. PANTOPRAZOLE [Concomitant]
     Active Substance: PANTOPRAZOLE
     Indication: Prostate cancer

REACTIONS (1)
  - Drug hypersensitivity [Unknown]
